FAERS Safety Report 11781204 (Version 1)
Quarter: 2015Q4

REPORT INFORMATION
  Report Type: Spontaneous
  Country: US (occurrence: US)
  Receive Date: 20151126
  Receipt Date: 20151126
  Transmission Date: 20160305
  Serious: No
  Sender: FDA-Public Use
  Company Number: US-PFIZER INC-2015368943

PATIENT
  Age: 60 Year
  Sex: Male

DRUGS (1)
  1. SUTENT [Suspect]
     Active Substance: SUNITINIB MALATE
     Dosage: 50 MG (ONE CAPSULE), ONCE DAILY, CYCLIC FOR 4 WEEKS ON AND THEN 2 WEEKS OFF)
     Route: 048

REACTIONS (1)
  - Productive cough [Unknown]
